FAERS Safety Report 12564109 (Version 1)
Quarter: 2016Q3

REPORT INFORMATION
  Report Type: Spontaneous
  Country: US (occurrence: None)
  Receive Date: 20160715
  Receipt Date: 20160715
  Transmission Date: 20161109
  Serious: Yes (Other)
  Sender: FDA-Public Use
  Company Number: None

PATIENT
  Age: 64 Year
  Sex: Female
  Weight: 83.92 kg

DRUGS (2)
  1. AMBIEN [Concomitant]
     Active Substance: ZOLPIDEM TARTRATE
  2. NEXIUM [Suspect]
     Active Substance: ESOMEPRAZOLE MAGNESIUM
     Indication: ERUCTATION
     Dosage: 90 CAPSULE(S) ONCE A DAY TAKEN BY MOUTH
     Route: 048
     Dates: start: 20151013, end: 20160713

REACTIONS (1)
  - Dry mouth [None]

NARRATIVE: CASE EVENT DATE: 20160101
